FAERS Safety Report 13353782 (Version 2)
Quarter: 2017Q1

REPORT INFORMATION
  Report Type: Spontaneous
  Country: US (occurrence: US)
  Receive Date: 20170321
  Receipt Date: 20170324
  Transmission Date: 20170429
  Serious: No
  Sender: FDA-Public Use
  Company Number: US-009507513-1703USA007865

PATIENT
  Age: 30 Year
  Sex: Female
  Weight: 53.06 kg

DRUGS (1)
  1. NEXPLANON [Suspect]
     Active Substance: ETONOGESTREL
     Indication: CONTRACEPTION
     Dosage: UNK, EVERY 3 YEARS
     Route: 059
     Dates: start: 20160719

REACTIONS (6)
  - Menorrhagia [Recovered/Resolved]
  - Vaginal discharge [Unknown]
  - Amenorrhoea [Unknown]
  - Fatigue [Unknown]
  - Hypomenorrhoea [Recovered/Resolved]
  - Menorrhagia [Recovered/Resolved]

NARRATIVE: CASE EVENT DATE: 20160719
